FAERS Safety Report 10749927 (Version 1)
Quarter: 2015Q1

REPORT INFORMATION
  Report Type: Report from Study
  Country: US (occurrence: US)
  Receive Date: 20150129
  Receipt Date: 20150129
  Transmission Date: 20150721
  Serious: Yes (Other)
  Sender: FDA-Public Use
  Company Number: US-GILEAD-2015-0133970

PATIENT
  Sex: Male

DRUGS (1)
  1. LEDIPASVIR/SOFOSBUVIR [Suspect]
     Active Substance: LEDIPASVIR\SOFOSBUVIR
     Indication: CHRONIC HEPATITIS C
     Dosage: 1 DF, UNK
     Route: 048
     Dates: start: 201412

REACTIONS (9)
  - Hepatic cirrhosis [Unknown]
  - Vomiting [Unknown]
  - Headache [Unknown]
  - Fatigue [Unknown]
  - Abdominal pain [Unknown]
  - Visual impairment [Unknown]
  - Memory impairment [Unknown]
  - Diarrhoea [Unknown]
  - Mobility decreased [Unknown]

NARRATIVE: CASE EVENT DATE: 201501
